FAERS Safety Report 4348931-5 (Version None)
Quarter: 2004Q1

REPORT INFORMATION
  Report Type: 
  Country: None (occurrence: None)
  Receive Date: 20040325
  Receipt Date: 20040128
  Transmission Date: 20041129
  Serious: No
  Sender: FDA-Public Use
  Company Number: USA031151831

PATIENT
  Age: 59 Year
  Sex: Female

DRUGS (3)
  1. FORTEO [Suspect]
     Indication: OSTEOPOROSIS
     Dates: start: 20031103
  2. CALCIUM [Concomitant]
  3. ACTONEL [Concomitant]

REACTIONS (2)
  - DYSGEUSIA [None]
  - SENSORY DISTURBANCE [None]
